FAERS Safety Report 9698529 (Version 2)
Quarter: 2014Q1

REPORT INFORMATION
  Report Type: Spontaneous
  Country: CA (occurrence: CA)
  Receive Date: 20131120
  Receipt Date: 20140120
  Transmission Date: 20141002
  Serious: No
  Sender: FDA-Public Use
  Company Number: CA-GLAXOSMITHKLINE-A1049663A

PATIENT
  Age: 28 Year
  Sex: Female

DRUGS (3)
  1. IMITREX [Suspect]
     Indication: MIGRAINE
  2. IMITREX [Suspect]
     Indication: MIGRAINE
     Route: 045
  3. IMITREX [Suspect]

REACTIONS (4)
  - Status migrainosus [Unknown]
  - Drug ineffective [Unknown]
  - Injection site pain [Not Recovered/Not Resolved]
  - Product quality issue [Unknown]
